FAERS Safety Report 22215895 (Version 2)
Quarter: 2023Q2

REPORT INFORMATION
  Report Type: Report from Study
  Country: US (occurrence: US)
  Receive Date: 20230417
  Receipt Date: 20230522
  Transmission Date: 20230721
  Serious: Yes (Other)
  Sender: FDA-Public Use
  Company Number: US-TAKEDA-2023TUS037758

PATIENT
  Sex: Female
  Weight: 156 kg

DRUGS (38)
  1. HUMAN IMMUNOGLOBULIN G [Suspect]
     Active Substance: HUMAN IMMUNOGLOBULIN G
     Indication: Selective IgG subclass deficiency
     Dosage: 15 GRAM, Q2WEEKS
     Route: 058
     Dates: start: 20230226
  2. BETAMETHASONE VALERATE [Concomitant]
     Active Substance: BETAMETHASONE VALERATE
  3. ARMOUR THYROID [Concomitant]
     Active Substance: THYROID, PORCINE
  4. METOPROLOL SUCCINATE [Concomitant]
     Active Substance: METOPROLOL SUCCINATE
  5. DULOXETINE HYDROCHLORIDE [Concomitant]
     Active Substance: DULOXETINE HYDROCHLORIDE
  6. ROSUVASTATIN CALCIUM [Concomitant]
     Active Substance: ROSUVASTATIN CALCIUM
  7. HERBALS\TURMERIC [Concomitant]
     Active Substance: HERBALS\TURMERIC
  8. BIOTIN [Concomitant]
     Active Substance: BIOTIN
  9. TRIAMCINOLONE ACETONIDE [Concomitant]
     Active Substance: TRIAMCINOLONE ACETONIDE
  10. LYRICA [Concomitant]
     Active Substance: PREGABALIN
  11. CLINDAMYCIN AND BENZOYL PEROXIDE [Concomitant]
     Active Substance: BENZOYL PEROXIDE\CLINDAMYCIN PHOSPHATE
  12. DOCUSATE SODIUM [Concomitant]
     Active Substance: DOCUSATE SODIUM
  13. FLUOCINOLONE ACETONIDE [Concomitant]
     Active Substance: FLUOCINOLONE ACETONIDE
  14. CLOBETASOL [Concomitant]
     Active Substance: CLOBETASOL
  15. BUPROPION HYDROCHLORIDE [Concomitant]
     Active Substance: BUPROPION HYDROCHLORIDE
  16. SINGULAIR [Concomitant]
     Active Substance: MONTELUKAST SODIUM
  17. VITAMIN D3 [Concomitant]
     Active Substance: CHOLECALCIFEROL
  18. FAMOTIDINE [Concomitant]
     Active Substance: FAMOTIDINE
  19. URSODIOL [Concomitant]
     Active Substance: URSODIOL
  20. XARELTO [Concomitant]
     Active Substance: RIVAROXABAN
  21. BETHANECHOL CHLORIDE [Concomitant]
     Active Substance: BETHANECHOL CHLORIDE
  22. BROVANA [Concomitant]
     Active Substance: ARFORMOTEROL TARTRATE
  23. VITAMIN C [Concomitant]
     Active Substance: ASCORBIC ACID
  24. BUDESONIDE [Concomitant]
     Active Substance: BUDESONIDE
  25. ACETAMINOPHEN [Concomitant]
     Active Substance: ACETAMINOPHEN
  26. VITAMIN B COMPLEX [Concomitant]
     Active Substance: CYANOCOBALAMIN\DEXPANTHENOL\NIACINAMIDE\PYRIDOXINE HYDROCHLORIDE\RIBOFLAVIN 5^-PHOSPHATE SODIUM\THIA
  27. MAGNESIUM [Concomitant]
     Active Substance: MAGNESIUM
  28. POTASSIUM CHLORIDE [Concomitant]
     Active Substance: POTASSIUM CHLORIDE
  29. BENADRYL [Concomitant]
     Active Substance: DIPHENHYDRAMINE HYDROCHLORIDE
  30. VOLTAREN [Concomitant]
     Active Substance: DICLOFENAC SODIUM
  31. MORPHINE SULFATE [Concomitant]
     Active Substance: MORPHINE SULFATE
  32. BREZTRI [Concomitant]
     Active Substance: BUDESONIDE\FORMOTEROL\GLYCOPYRROLATE
  33. TORSEMIDE [Concomitant]
     Active Substance: TORSEMIDE
  34. PANTOPRAZOLE SODIUM [Concomitant]
     Active Substance: PANTOPRAZOLE SODIUM
  35. FOLIC ACID [Concomitant]
     Active Substance: FOLIC ACID
  36. TESSALON [Concomitant]
     Active Substance: BENZONATATE
  37. EPIPEN [Concomitant]
     Active Substance: EPINEPHRINE
  38. OXYBUTYNIN CHLORIDE [Concomitant]
     Active Substance: OXYBUTYNIN CHLORIDE

REACTIONS (6)
  - Pneumonia [Unknown]
  - Ear infection [Unknown]
  - Sinusitis [Unknown]
  - Somnolence [Unknown]
  - Infusion site erythema [Unknown]
  - Inappropriate schedule of product administration [Unknown]
